APPROVED DRUG PRODUCT: KETEK
Active Ingredient: TELITHROMYCIN
Strength: 400MG
Dosage Form/Route: TABLET;ORAL
Application: N021144 | Product #001
Applicant: SANOFI AVENTIS US LLC
Approved: Apr 1, 2004 | RLD: No | RS: No | Type: DISCN